FAERS Safety Report 5211113-9 (Version None)
Quarter: 2006Q4

REPORT INFORMATION
  Report Type: 
  Country: None (occurrence: None)
  Receive Date: 20061114
  Receipt Date: 20060717
  Transmission Date: 20070319
  Serious: No
  Sender: FDA-Public Use
  Company Number: S06-USA-02775-01

PATIENT
  Age: 75 Year
  Sex: Male

DRUGS (7)
  1. NAMENDA [Suspect]
     Indication: AMNESIA
     Dosage: 15 MG QD PO
     Route: 048
     Dates: start: 20060619, end: 20060625
  2. NAMENDA [Suspect]
     Indication: AMNESIA
     Dosage: 10 MG BID PO
     Route: 048
     Dates: start: 20060626
  3. NAMENDA [Suspect]
     Indication: AMNESIA
     Dosage: 5 MG QD PO
     Route: 048
     Dates: start: 20060605, end: 20060611
  4. NAMENDA [Suspect]
     Indication: AMNESIA
     Dosage: 5 MG BID PO
     Route: 048
     Dates: start: 20060612, end: 20060618
  5. ARICEPT [Concomitant]
  6. MULTI-VITAMIN [Concomitant]
  7. VITAMIN B-12 [Concomitant]

REACTIONS (2)
  - CONFUSIONAL STATE [None]
  - DIARRHOEA [None]
